FAERS Safety Report 10332113 (Version 1)
Quarter: 2014Q3

REPORT INFORMATION
  Report Type: Spontaneous
  Country: ES (occurrence: ES)
  Receive Date: 20140722
  Receipt Date: 20140722
  Transmission Date: 20150326
  Serious: Yes (Other)
  Sender: FDA-Public Use
  Company Number: ES-BRISTOL-MYERS SQUIBB COMPANY-21202411

PATIENT
  Age: 41 Year
  Sex: Male

DRUGS (4)
  1. TRIGON-DEPOT-INJ [Suspect]
     Active Substance: TRIAMCINOLONE
     Indication: INTERVERTEBRAL DISC PROTRUSION
  2. NORVIR [Concomitant]
     Active Substance: RITONAVIR
  3. PREZISTA [Concomitant]
     Active Substance: DARUNAVIR ETHANOLATE
  4. ATORVASTATIN [Concomitant]
     Active Substance: ATORVASTATIN

REACTIONS (6)
  - Deep vein thrombosis [Not Recovered/Not Resolved]
  - Off label use [Not Recovered/Not Resolved]
  - Candida infection [Not Recovered/Not Resolved]
  - Quality of life decreased [None]
  - Fatigue [Not Recovered/Not Resolved]
  - Deep vein thrombosis [None]
